FAERS Safety Report 6831144-2 (Version None)
Quarter: 2010Q3

REPORT INFORMATION
  Report Type: 
  Country: None (occurrence: None)
  Receive Date: 20100712
  Receipt Date: 20100702
  Transmission Date: 20110219
  Serious: Yes (Death)
  Sender: FDA-Public Use
  Company Number: US-JNJFOC-20100702340

PATIENT
  Age: 82 Year
  Sex: Female

DRUGS (4)
  1. HALOPERIDOL [Suspect]
     Indication: PRODUCT USED FOR UNKNOWN INDICATION
     Route: 030
  2. LORAZEPAM [Suspect]
     Indication: PRODUCT USED FOR UNKNOWN INDICATION
     Route: 030
  3. OLANZAPINE [Suspect]
     Indication: AGGRESSION
     Route: 030
  4. OLANZAPINE [Suspect]
     Indication: AGITATION
     Route: 030

REACTIONS (8)
  - DEPRESSED LEVEL OF CONSCIOUSNESS [None]
  - DROOLING [None]
  - HAEMORRHAGIC STROKE [None]
  - HEAD INJURY [None]
  - MOTOR DYSFUNCTION [None]
  - MUSCULAR WEAKNESS [None]
  - SPEECH DISORDER [None]
  - VIITH NERVE PARALYSIS [None]
